FAERS Safety Report 17426816 (Version 3)
Quarter: 2020Q1

REPORT INFORMATION
  Report Type: Spontaneous
  Country: US (occurrence: US)
  Receive Date: 20200218
  Receipt Date: 20200222
  Transmission Date: 20200409
  Serious: Yes (Other)
  Sender: FDA-Public Use
  Company Number: US-UNITED THERAPEUTICS-UNT-2020-002534

PATIENT
  Age: 65 Year
  Sex: Male

DRUGS (1)
  1. REMODULIN [Suspect]
     Active Substance: TREPROSTINIL
     Indication: PULMONARY ARTERIAL HYPERTENSION
     Dosage: 0.0215 ?G/KG, CONTINUING
     Route: 058
     Dates: start: 20180119

REACTIONS (6)
  - Pyrexia [Unknown]
  - Vomiting [Unknown]
  - Infusion site infection [Unknown]
  - Infusion site pain [Unknown]
  - Infusion site erythema [Unknown]
  - Flushing [Unknown]

NARRATIVE: CASE EVENT DATE: 202002
